FAERS Safety Report 23283329 (Version 1)
Quarter: 2023Q4

REPORT INFORMATION
  Report Type: Report from Study
  Country: US (occurrence: US)
  Receive Date: 20231211
  Receipt Date: 20231211
  Transmission Date: 20240110
  Serious: Yes (Other)
  Sender: FDA-Public Use
  Company Number: US-MYLANLABS-2023M1130770

PATIENT
  Age: 38 Year
  Sex: Female

DRUGS (1)
  1. FINGOLIMOD [Suspect]
     Active Substance: FINGOLIMOD
     Indication: Relapsing-remitting multiple sclerosis
     Dosage: UNK
     Route: 065

REACTIONS (8)
  - Inflammatory bowel disease [Unknown]
  - Obesity [Unknown]
  - Constipation [Unknown]
  - Premenstrual syndrome [Unknown]
  - Menstrual disorder [Unknown]
  - Thyroid disorder [Unknown]
  - Back pain [Unknown]
  - Hypersensitivity [Unknown]
